FAERS Safety Report 15625003 (Version 1)
Quarter: 2018Q4

REPORT INFORMATION
  Report Type: Spontaneous
  Country: US (occurrence: US)
  Receive Date: 20181113
  Receipt Date: 20181113
  Transmission Date: 20190205
  Serious: Yes (Life-Threatening)
  Sender: FDA-Public Use
  Company Number: None

PATIENT
  Age: 36 Year
  Sex: Female
  Weight: 69.75 kg

DRUGS (3)
  1. HYDROCHLOROTHIAZIDE\LISINOPRIL [Suspect]
     Active Substance: HYDROCHLOROTHIAZIDE\LISINOPRIL
     Indication: HYPERTENSION
     Dosage: ?          QUANTITY:1 DF DOSAGE FORM;?
     Route: 048
     Dates: start: 20181023, end: 20181109
  2. ESTRADIOL. [Concomitant]
     Active Substance: ESTRADIOL
  3. TROSPIUM [Concomitant]
     Active Substance: TROSPIUM

REACTIONS (1)
  - Angioedema [None]

NARRATIVE: CASE EVENT DATE: 20181109
